FAERS Safety Report 7459499-9 (Version None)
Quarter: 2011Q2

REPORT INFORMATION
  Report Type: 
  Country: None (occurrence: None)
  Receive Date: 20110505
  Receipt Date: 20110427
  Transmission Date: 20111010
  Serious: Yes (Hospitalization)
  Sender: FDA-Public Use
  Company Number: US-GENZYME-MOZO-1000508

PATIENT
  Age: 63 Year
  Sex: Female
  Weight: 64 kg

DRUGS (1)
  1. MOZOBIL [Suspect]
     Indication: CHEMOTHERAPY
     Route: 065

REACTIONS (5)
  - PYREXIA [None]
  - ANAEMIA [None]
  - MEDICAL DEVICE COMPLICATION [None]
  - ASTHENIA [None]
  - FATIGUE [None]
